FAERS Safety Report 8415726-2 (Version None)
Quarter: 2012Q2

REPORT INFORMATION
  Report Type: 
  Country: None (occurrence: None)
  Receive Date: 20120323
  Receipt Date: 20110630
  Transmission Date: 20120825
  Serious: Yes (Other)
  Sender: FDA-Public Use
  Company Number: 163-21880-11022074

PATIENT
  Age: 63 Year
  Sex: Female

DRUGS (10)
  1. ASPIRIN [Concomitant]
  2. AMLODIPINE [Concomitant]
  3. REVLIMID [Suspect]
     Indication: MULTIPLE MYELOMA
     Dosage: 10 MG, 1 IN 1 D, PO ; 5 MG, 21 OUT OF 28 DAYS, PO
     Route: 048
     Dates: start: 20101227
  4. REVLIMID [Suspect]
     Indication: MULTIPLE MYELOMA
     Dosage: 10 MG, 1 IN 1 D, PO ; 5 MG, 21 OUT OF 28 DAYS, PO
     Route: 048
     Dates: start: 20100219, end: 20101208
  5. VELCADE [Concomitant]
  6. DECADRON [Concomitant]
  7. FUROSEMIDE [Concomitant]
  8. NEURONTIN [Concomitant]
  9. VALACYCLOVIR [Concomitant]
  10. LEVAQUIN [Concomitant]

REACTIONS (4)
  - DEEP VEIN THROMBOSIS [None]
  - OEDEMA PERIPHERAL [None]
  - ERYTHEMA [None]
  - PAIN IN EXTREMITY [None]
